FAERS Safety Report 11132209 (Version 2)
Quarter: 2015Q2

REPORT INFORMATION
  Report Type: Spontaneous
  Country: JP (occurrence: JP)
  Receive Date: 20150522
  Receipt Date: 20150611
  Transmission Date: 20150821
  Serious: Yes (Disabling)
  Sender: FDA-Public Use
  Company Number: JP-ELI_LILLY_AND_COMPANY-JP201505006795

PATIENT
  Age: 73 Year
  Sex: Male

DRUGS (5)
  1. FLIVAS [Concomitant]
     Active Substance: NAFTOPIDIL
     Dosage: 75 MG, QD
     Route: 048
     Dates: start: 20150131, end: 20150508
  2. ZALUTIA [Suspect]
     Active Substance: TADALAFIL
     Indication: BENIGN PROSTATIC HYPERPLASIA
     Dosage: 5 MG, QD
     Route: 048
     Dates: start: 20150509, end: 20150515
  3. AVOLVE [Concomitant]
     Active Substance: DUTASTERIDE
     Indication: BENIGN PROSTATIC HYPERPLASIA
     Dosage: UNK
     Route: 048
     Dates: start: 20150207, end: 20150508
  4. AVOLVE [Concomitant]
     Active Substance: DUTASTERIDE
     Dosage: 0.5 MG, QD
     Route: 048
     Dates: start: 20150516
  5. FLIVAS [Concomitant]
     Active Substance: NAFTOPIDIL
     Indication: BENIGN PROSTATIC HYPERPLASIA
     Dosage: 50 MG, QD
     Route: 048
     Dates: start: 20140919, end: 20150130

REACTIONS (1)
  - Urinary retention [Recovered/Resolved]

NARRATIVE: CASE EVENT DATE: 20150511
